FAERS Safety Report 22644274 (Version 1)
Quarter: 2023Q2

REPORT INFORMATION
  Report Type: Spontaneous
  Country: CA (occurrence: US)
  Receive Date: 20230627
  Receipt Date: 20230627
  Transmission Date: 20230721
  Serious: No
  Sender: FDA-Public Use
  Company Number: CA-009507513-2306USA000091

PATIENT
  Age: 20 Year
  Sex: Female

DRUGS (5)
  1. NOXAFIL [Suspect]
     Active Substance: POSACONAZOLE
     Indication: Chronic granulomatous disease
     Dosage: 300 MILLIGRAM, Q12H, TWO DOSES
     Route: 042
  2. NOXAFIL [Suspect]
     Active Substance: POSACONAZOLE
     Indication: Disseminated trichosporonosis
     Dosage: 300 MILLIGRAM, Q24H
     Route: 042
  3. NOXAFIL [Suspect]
     Active Substance: POSACONAZOLE
     Indication: Chronic granulomatous disease
     Dosage: UNK
     Route: 048
  4. NOXAFIL [Suspect]
     Active Substance: POSACONAZOLE
     Indication: Disseminated trichosporonosis
  5. AMPHOTERICIN B [Suspect]
     Active Substance: AMPHOTERICIN B
     Dosage: 5 MG/KG, EVERY 24 HOURS

REACTIONS (1)
  - Off label use [Unknown]
